FAERS Safety Report 25213000 (Version 1)
Quarter: 2025Q2

REPORT INFORMATION
  Report Type: Spontaneous
  Country: US (occurrence: US)
  Receive Date: 20250418
  Receipt Date: 20250418
  Transmission Date: 20250716
  Serious: Yes (Death)
  Sender: Steriscience PTE
  Company Number: US-STERISCIENCE B.V.-2025-ST-000735

PATIENT
  Age: 45 Year
  Sex: Female

DRUGS (1)
  1. THIAMINE [Suspect]
     Active Substance: THIAMINE
     Indication: Vitamin B1 deficiency
     Route: 042

REACTIONS (1)
  - Drug ineffective [Fatal]
